FAERS Safety Report 4339101-5 (Version None)
Quarter: 2004Q2

REPORT INFORMATION
  Report Type: 
  Country: None (occurrence: None)
  Receive Date: 20040412
  Receipt Date: 20040326
  Transmission Date: 20050107
  Serious: Yes (Hospitalization)
  Sender: FDA-Public Use
  Company Number: 195061

PATIENT
  Age: 64 Year
  Sex: Female
  Weight: 72.5755 kg

DRUGS (7)
  1. AVONEX [Suspect]
     Indication: MULTIPLE SCLEROSIS
     Dosage: 30 MCG QW IM
     Route: 030
     Dates: start: 19990106, end: 20030801
  2. AVONEX [Suspect]
     Indication: MULTIPLE SCLEROSIS
     Dosage: 30 MCG QW IM
     Route: 030
     Dates: start: 20030801
  3. ZOCOR [Concomitant]
  4. PROPRANOLOL [Concomitant]
  5. PROCARDIA [Concomitant]
  6. NEURONTIN [Concomitant]
  7. PAXIL [Concomitant]

REACTIONS (6)
  - CAROTID ARTERY OCCLUSION [None]
  - CYANOSIS [None]
  - DIFFICULTY IN WALKING [None]
  - LOCALISED INFECTION [None]
  - PERIPHERAL OCCLUSIVE DISEASE [None]
  - THROMBOSIS [None]
